FAERS Safety Report 19473153 (Version 1)
Quarter: 2021Q2

REPORT INFORMATION
  Report Type: Report from Study
  Country: US (occurrence: US)
  Receive Date: 20210629
  Receipt Date: 20210629
  Transmission Date: 20210717
  Serious: Yes (Other)
  Sender: FDA-Public Use
  Company Number: US-EXELIXIS-CABO-21040917

PATIENT
  Age: 47 Year
  Sex: Male

DRUGS (3)
  1. CABOMETYX [Suspect]
     Active Substance: CABOZANTINIB S-MALATE
     Indication: BONE CANCER
     Dosage: 60 MG, QD
     Route: 048
     Dates: start: 20210524, end: 202105
  2. CABOMETYX [Suspect]
     Active Substance: CABOZANTINIB S-MALATE
     Indication: METASTASES TO LUNG
     Dosage: 40 MG, QD
     Route: 048
  3. CABOMETYX [Suspect]
     Active Substance: CABOZANTINIB S-MALATE
     Indication: CHONDROSARCOMA
     Dosage: 40 MG, QD
     Dates: start: 202105

REACTIONS (20)
  - Toxicity to various agents [Unknown]
  - Throat irritation [Unknown]
  - Choking [Unknown]
  - Decreased appetite [Unknown]
  - Acne [Unknown]
  - Nausea [Unknown]
  - Abdominal pain [Unknown]
  - Protein total decreased [Unknown]
  - Eating disorder [Unknown]
  - Fatigue [Unknown]
  - Taste disorder [Unknown]
  - Dry skin [Unknown]
  - Weight decreased [Unknown]
  - Blood pressure increased [Unknown]
  - Dehydration [Unknown]
  - Glossitis [Unknown]
  - Sinus disorder [Unknown]
  - Diarrhoea [Unknown]
  - Vomiting [Unknown]
  - Off label use [Unknown]

NARRATIVE: CASE EVENT DATE: 20210531
